FAERS Safety Report 6016727-4 (Version None)
Quarter: 2008Q4

REPORT INFORMATION
  Report Type: 
  Country: None (occurrence: None)
  Receive Date: 20081218
  Receipt Date: 20081208
  Transmission Date: 20090506
  Serious: Yes (Other)
  Sender: FDA-Public Use
  Company Number: 08-001971

PATIENT
  Sex: Female

DRUGS (1)
  1. LOESTRIN 24 FE (NORETHINDRONE ACETATE, ETHINYL ESTRADIOL, FERROUS FUMA [Suspect]
     Dosage: 20/1000 UG, QD, ORAL
     Route: 048
     Dates: start: 20080801

REACTIONS (1)
  - COELIAC DISEASE [None]
